FAERS Safety Report 16344075 (Version 2)
Quarter: 2019Q2

REPORT INFORMATION
  Report Type: Spontaneous
  Country: JP (occurrence: JP)
  Receive Date: 20190522
  Receipt Date: 20190527
  Transmission Date: 20190711
  Serious: No
  Sender: FDA-Public Use
  Company Number: JP-AMGEN-JPNSP2019079251

PATIENT
  Age: 70 Year
  Sex: Female
  Weight: 41 kg

DRUGS (8)
  1. ASPARA-CA [Concomitant]
     Active Substance: CALCIUM ASPARTATE
     Dosage: UNK
     Dates: start: 20171213
  2. RHEUMATREX [Concomitant]
     Active Substance: METHOTREXATE SODIUM
     Indication: INFECTION SUSCEPTIBILITY INCREASED
     Dosage: UNK
     Dates: start: 20160714, end: 20190422
  3. EVENITY [Suspect]
     Active Substance: ROMOSOZUMAB-AQQG
     Indication: OSTEOPOROSIS
     Dosage: 210 MILLIGRAM, QMO
     Route: 058
     Dates: start: 20190410, end: 20190509
  4. FOLIAMIN [Concomitant]
     Active Substance: FOLIC ACID
     Dosage: UNK
     Dates: start: 20151202, end: 20190422
  5. ACTEMRA [Concomitant]
     Active Substance: TOCILIZUMAB
     Dosage: 162 MILLIGRAM
     Route: 058
     Dates: start: 20180620, end: 20190420
  6. LIVALO [Concomitant]
     Active Substance: PITAVASTATIN CALCIUM
     Dosage: 2 MILLIGRAM, QD
     Dates: start: 20160218
  7. EDIROL [Concomitant]
     Active Substance: ELDECALCITOL
     Dosage: 075 MICROGRAM
     Dates: start: 20160218
  8. TAKECAB [Concomitant]
     Active Substance: VONOPRAZAN FUMURATE
     Dosage: 10 MILLIGRAM
     Dates: start: 20180620

REACTIONS (2)
  - Myalgia [Not Recovered/Not Resolved]
  - Drug eruption [Recovering/Resolving]

NARRATIVE: CASE EVENT DATE: 20190411
